FAERS Safety Report 21590886 (Version 2)
Quarter: 2022Q4

REPORT INFORMATION
  Report Type: Spontaneous
  Country: PT (occurrence: PT)
  Receive Date: 20221114
  Receipt Date: 20221118
  Transmission Date: 20230113
  Serious: Yes (Other)
  Sender: FDA-Public Use
  Company Number: PT-SCALL-2022-PT-000075

PATIENT
  Sex: 0

DRUGS (1)
  1. AVODART [Suspect]
     Active Substance: DUTASTERIDE
     Indication: Product used for unknown indication
     Dosage: UNK, 0.5MG X 60 CAPSULES
     Route: 065

REACTIONS (2)
  - Choking [Unknown]
  - Product complaint [Unknown]
